FAERS Safety Report 6354843-8 (Version None)
Quarter: 2009Q3

REPORT INFORMATION
  Report Type: 
  Country: None (occurrence: None)
  Receive Date: 20090914
  Receipt Date: 20090905
  Transmission Date: 20100115
  Serious: Yes (Hospitalization)
  Sender: FDA-Public Use
  Company Number: JP-ASTRAZENECA-2009SE02394

PATIENT
  Age: 45 Year
  Sex: Male

DRUGS (8)
  1. OMEPRAL [Suspect]
     Indication: REFLUX OESOPHAGITIS
     Route: 048
     Dates: start: 20090303, end: 20090401
  2. OMEPRAL [Suspect]
     Indication: HELICOBACTER INFECTION
     Route: 048
     Dates: start: 20090303, end: 20090401
  3. OMEPRAL [Suspect]
     Route: 048
     Dates: start: 20090402, end: 20090408
  4. OMEPRAL [Suspect]
     Route: 048
     Dates: start: 20090402, end: 20090408
  5. OMEPRAL [Suspect]
     Route: 048
  6. OMEPRAL [Suspect]
     Route: 048
  7. SAWACILLIN [Suspect]
     Indication: HELICOBACTER INFECTION
     Route: 048
     Dates: start: 20090402, end: 20090408
  8. KLARICID [Suspect]
     Indication: HELICOBACTER INFECTION
     Route: 048
     Dates: start: 20090402, end: 20090408

REACTIONS (3)
  - ALANINE AMINOTRANSFERASE INCREASED [None]
  - ASPARTATE AMINOTRANSFERASE INCREASED [None]
  - GAMMA-GLUTAMYLTRANSFERASE INCREASED [None]
